FAERS Safety Report 6074233-5 (Version None)
Quarter: 2009Q1

REPORT INFORMATION
  Report Type: 
  Country: None (occurrence: None)
  Receive Date: 20090211
  Receipt Date: 20090206
  Transmission Date: 20090719
  Serious: Yes (Hospitalization)
  Sender: FDA-Public Use
  Company Number: US-ABBOTT-08P-163-0475102-00

PATIENT
  Age: 22 Year
  Sex: Male

DRUGS (1)
  1. OMNICEF [Suspect]
     Indication: PHARYNGITIS STREPTOCOCCAL

REACTIONS (1)
  - HEPATOTOXICITY [None]
